FAERS Safety Report 11444796 (Version 1)
Quarter: 2015Q3

REPORT INFORMATION
  Report Type: Spontaneous
  Country: IL (occurrence: None)
  Receive Date: 20150831
  Receipt Date: 20150831
  Transmission Date: 20151125
  Serious: Yes (Hospitalization, Other)
  Sender: FDA-Public Use
  Company Number: IL-002471

PATIENT
  Sex: Male
  Weight: 58.5 kg

DRUGS (2)
  1. GATTEX [Suspect]
     Active Substance: TEDUGLUTIDE\WATER
     Indication: SHORT-BOWEL SYNDROME
     Dosage: DF
     Route: 058
     Dates: start: 20150304
  2. SOLUTIONS FOR PARENTERAL NUTRITION [Concomitant]
     Active Substance: AMINO ACIDS\DEXTROSE\ELECTROLYTES NOS

REACTIONS (4)
  - Blood bilirubin increased [None]
  - Blood bilirubin unconjugated increased [None]
  - Alanine aminotransferase decreased [None]
  - Hepatic enzyme abnormal [None]

NARRATIVE: CASE EVENT DATE: 20150621
